FAERS Safety Report 17896839 (Version 1)
Quarter: 2020Q2

REPORT INFORMATION
  Report Type: Spontaneous
  Country: JP (occurrence: JP)
  Receive Date: 20200615
  Receipt Date: 20200615
  Transmission Date: 20200714
  Serious: Yes (Hospitalization, Disabling, Other)
  Sender: FDA-Public Use
  Company Number: JP-ELI_LILLY_AND_COMPANY-JP201807010181

PATIENT
  Age: 70 Year
  Sex: Female
  Weight: 65 kg

DRUGS (24)
  1. LEVOTHYROXINE. [Concomitant]
     Active Substance: LEVOTHYROXINE
  2. NIFEDIPINE. [Concomitant]
     Active Substance: NIFEDIPINE
  3. PREGABALIN. [Concomitant]
     Active Substance: PREGABALIN
  4. CYRAMZA [Suspect]
     Active Substance: RAMUCIRUMAB
     Indication: GASTRIC CANCER RECURRENT
     Dosage: 8 MG/KG, Q2WK
     Route: 065
  5. OPDIVO [Suspect]
     Active Substance: NIVOLUMAB
     Indication: GASTRIC CANCER
     Dosage: 3 MG/KG, Q2WK
     Route: 041
  6. MAGMITT [Concomitant]
     Active Substance: MAGNESIUM OXIDE
  7. MAGNESIUM OXIDE. [Concomitant]
     Active Substance: MAGNESIUM OXIDE
  8. CRESTOR [Concomitant]
     Active Substance: ROSUVASTATIN CALCIUM
  9. LOXOPROFEN [Concomitant]
     Active Substance: LOXOPROFEN
  10. FEBUXOSTAT. [Concomitant]
     Active Substance: FEBUXOSTAT
  11. PARACETAMOL A [Concomitant]
     Active Substance: ACETAMINOPHEN
  12. LYRICA [Concomitant]
     Active Substance: PREGABALIN
  13. TRAMADOL HYDROCHLORIDE AND ACETAMINOPHEN [Concomitant]
     Active Substance: ACETAMINOPHEN\TRAMADOL HYDROCHLORIDE
  14. FEBURIC [Concomitant]
     Active Substance: FEBUXOSTAT
  15. ESOMEPRAZOLE MAGNESIUM DIHYDRATE [Concomitant]
     Active Substance: ESOMEPRAZOLE MAGNESIUM
  16. PACLITAXEL. [Concomitant]
     Active Substance: PACLITAXEL
     Indication: GASTRIC CANCER RECURRENT
     Dosage: UNK
     Route: 065
     Dates: start: 2017
  17. TRAMCET [Concomitant]
     Active Substance: ACETAMINOPHEN\TRAMADOL
  18. FUROSEMIDE ACCORD [FUROSEMIDE SODIUM] [Concomitant]
  19. ROSUVASTATIN [ROSUVASTATIN CALCIUM] [Concomitant]
     Active Substance: ROSUVASTATIN CALCIUM
  20. NEXIUM [Concomitant]
     Active Substance: ESOMEPRAZOLE MAGNESIUM
  21. TRAMADOL HYDROCHLORIDE. [Concomitant]
     Active Substance: TRAMADOL HYDROCHLORIDE
  22. FLUNITRAZEPAM [Concomitant]
     Active Substance: FLUNITRAZEPAM
  23. LORAZEPAM. [Concomitant]
     Active Substance: LORAZEPAM
  24. PERINDOPRIL [Concomitant]
     Active Substance: PERINDOPRIL

REACTIONS (9)
  - Altered state of consciousness [Unknown]
  - Hypothyroidism [Not Recovered/Not Resolved]
  - Bacteraemia [Recovered/Resolved]
  - Bone marrow failure [Unknown]
  - Febrile neutropenia [Recovered/Resolved]
  - Sepsis [Recovered/Resolved]
  - Ascites [Unknown]
  - Malignant neoplasm progression [Unknown]
  - Platelet count decreased [Unknown]

NARRATIVE: CASE EVENT DATE: 20171007
